FAERS Safety Report 7332977 (Version 24)
Quarter: 2014Q2

REPORT INFORMATION
  Report Type: Report from Study
  Country: CA (occurrence: CA)
  Receive Date: 20100326
  Receipt Date: 20140428
  Transmission Date: 20141212
  Serious: Yes (Other)
  Sender: FDA-Public Use
  Company Number: PHHY2009CA18462

PATIENT
  Age: 62 Year
  Sex: Female

DRUGS (8)
  1. SANDOSTATIN LAR [Suspect]
     Indication: ACROMEGALY
     Dosage: 30 MG, QMO
     Route: 030
     Dates: start: 20041026
  2. SANDOSTATIN LAR [Suspect]
     Dosage: 30 MG, EVERY FOUR WEEKS
     Route: 030
  3. SANDOSTATIN LAR [Suspect]
     Dosage: 60 MG, EVERY 4 WEEKS
     Route: 030
  4. SYNTHROID [Concomitant]
     Dosage: UNK UKN, UNK
  5. DILANTIN [Concomitant]
     Dosage: UNK UKN, UNK
  6. NORTRIPTYLINE [Concomitant]
     Dosage: UNK UKN, UNK
  7. LISINOPRIL [Concomitant]
     Dosage: UNK UKN, UNK
  8. TOPIRAMATE [Concomitant]
     Dosage: UNK UKN, UNK

REACTIONS (22)
  - Loss of consciousness [Unknown]
  - Blindness [Unknown]
  - Balance disorder [Unknown]
  - Thyroid cyst [Unknown]
  - Urinary tract infection [Unknown]
  - Dyspnoea [Unknown]
  - Chest discomfort [Unknown]
  - Headache [Not Recovered/Not Resolved]
  - Arthralgia [Unknown]
  - Nasopharyngitis [Unknown]
  - Oedema peripheral [Unknown]
  - Flank pain [Unknown]
  - Blood pressure increased [Unknown]
  - Pollakiuria [Unknown]
  - Influenza like illness [Unknown]
  - Oropharyngeal pain [Unknown]
  - Blood pressure diastolic increased [Unknown]
  - Mass [Unknown]
  - Blood growth hormone increased [Recovering/Resolving]
  - Abdominal discomfort [Unknown]
  - Blood glucose fluctuation [Unknown]
  - Blood glucose increased [Unknown]
